FAERS Safety Report 5062873-1 (Version None)
Quarter: 2006Q3

REPORT INFORMATION
  Report Type: 
  Country: None (occurrence: None)
  Receive Date: 20060724
  Receipt Date: 20060714
  Transmission Date: 20061208
  Serious: Yes (Other)
  Sender: FDA-Public Use
  Company Number: CHNY2006FI01450

PATIENT
  Sex: Female

DRUGS (1)
  1. NICOTINELL LOZENGE (NCH)(NICOTINE) LOZENGE [Suspect]
     Indication: SMOKING CESSATION THERAPY
     Dosage: 1 MG, ORAL
     Route: 048
     Dates: start: 20060501

REACTIONS (4)
  - CONFUSIONAL STATE [None]
  - DIZZINESS [None]
  - HEAD DISCOMFORT [None]
  - PSYCHOMOTOR HYPERACTIVITY [None]
